FAERS Safety Report 7328728-4 (Version None)
Quarter: 2011Q1

REPORT INFORMATION
  Report Type: 
  Country: None (occurrence: None)
  Receive Date: 20110225
  Receipt Date: 20110225
  Transmission Date: 20110831
  Serious: Yes (Hospitalization)
  Sender: FDA-Public Use
  Company Number: None

PATIENT
  Age: 63 Year
  Sex: Male
  Weight: 102.0593 kg

DRUGS (1)
  1. AZITHROMYCIN [Suspect]
     Indication: PHARYNGITIS
     Dosage: 5-DAY PACK DAILY PO
     Route: 048
     Dates: start: 20110214, end: 20110216

REACTIONS (3)
  - ROAD TRAFFIC ACCIDENT [None]
  - CEREBROVASCULAR ACCIDENT [None]
  - NAUSEA [None]
